FAERS Safety Report 4485335-9 (Version None)
Quarter: 2004Q3

REPORT INFORMATION
  Report Type: 
  Country: None (occurrence: None)
  Receive Date: 20040921
  Receipt Date: 20040417
  Transmission Date: 20050211
  Serious: Yes (Death, Hospitalization)
  Sender: FDA-Public Use
  Company Number: 163-20785-04040451

PATIENT
  Age: 41 Year
  Sex: Male

DRUGS (3)
  1. THALOMID [Suspect]
     Indication: ACUTE MYELOID LEUKAEMIA
     Dosage: 200 MG, DAILY, ORAL
     Route: 048
     Dates: start: 20040405, end: 20040412
  2. CARBOPLATIN [Suspect]
     Indication: ACUTE MYELOID LEUKAEMIA
     Dosage: 230 MG, DAILY TIMES 5 DAYS, INTRAVENOUS
     Route: 042
     Dates: start: 20040327, end: 20040401
  3. HYDROXYUREA [Concomitant]

REACTIONS (6)
  - BLOOD BILIRUBIN INCREASED [None]
  - DEATH [None]
  - DISEASE PROGRESSION [None]
  - NEUTROPHIL COUNT DECREASED [None]
  - PLATELET COUNT DECREASED [None]
  - SEPSIS [None]
